FAERS Safety Report 20795666 (Version 6)
Quarter: 2022Q3

REPORT INFORMATION
  Report Type: Report from Study
  Country: DK (occurrence: None)
  Receive Date: 20220506
  Receipt Date: 20220825
  Transmission Date: 20221026
  Serious: Yes (Hospitalization)
  Sender: FDA-Public Use
  Company Number: DK-ROCHE-3088286

PATIENT
  Age: 76 Year
  Sex: Male
  Weight: 82 kg

DRUGS (26)
  1. GLOFITAMAB [Suspect]
     Active Substance: GLOFITAMAB
     Indication: High-grade B-cell lymphoma
     Dosage: MOST RECENT DOSE ADMIN ON 25/APR/2022 AT 01:17 PM TO 03:47 PM (30 MG) PRIOR TO AE/SAE
     Route: 042
     Dates: start: 20220207
  2. OBINUTUZUMAB [Suspect]
     Active Substance: OBINUTUZUMAB
     Indication: High-grade B-cell lymphoma
     Dosage: TOTAL VOLUME PRIOR TO AE/SAE 250 ML
     Route: 042
     Dates: start: 20220131
  3. TOCILIZUMAB [Suspect]
     Active Substance: TOCILIZUMAB
     Indication: High-grade B-cell lymphoma
     Dosage: TOTAL VOLUME 100 ML
     Route: 042
     Dates: start: 20220218
  4. POLATUZUMAB VEDOTIN [Suspect]
     Active Substance: POLATUZUMAB VEDOTIN
     Indication: High-grade B-cell lymphoma
     Dosage: MOST RECENT DOSE ADMIN ON 25/APR/2022 AT 11:15 AM TO 11:45 AM, 142 MG?TOTAL VOLUME 100 ML
     Route: 042
     Dates: start: 20220201
  5. CLEMASTINE [Concomitant]
     Active Substance: CLEMASTINE
     Dosage: YES
     Route: 048
     Dates: start: 20220425, end: 20220425
  6. CLEMASTINE [Concomitant]
     Active Substance: CLEMASTINE
     Route: 048
     Dates: start: 20220516, end: 20220516
  7. CLEMASTINE [Concomitant]
     Active Substance: CLEMASTINE
     Route: 048
     Dates: start: 20220608, end: 20220608
  8. CLEMASTINE [Concomitant]
     Active Substance: CLEMASTINE
     Route: 048
     Dates: start: 20220627, end: 20220627
  9. ACETAMINOPHEN [Concomitant]
     Active Substance: ACETAMINOPHEN
     Indication: Pain
     Route: 048
     Dates: start: 20220425, end: 20220425
  10. ACETAMINOPHEN [Concomitant]
     Active Substance: ACETAMINOPHEN
     Dates: start: 20150509
  11. ACETAMINOPHEN [Concomitant]
     Active Substance: ACETAMINOPHEN
     Route: 048
     Dates: start: 20220516, end: 20220516
  12. ACETAMINOPHEN [Concomitant]
     Active Substance: ACETAMINOPHEN
     Route: 048
     Dates: start: 20220608, end: 20220608
  13. ACETAMINOPHEN [Concomitant]
     Active Substance: ACETAMINOPHEN
     Route: 048
     Dates: start: 20220627, end: 20220627
  14. HJERTEMAGNYL [Concomitant]
     Dates: start: 20130226
  15. NITROLINGUAL [Concomitant]
     Active Substance: NITROGLYCERIN
     Dates: start: 20200330
  16. BENDROFLUMETHIAZIDE\POTASSIUM CHLORIDE [Concomitant]
     Active Substance: BENDROFLUMETHIAZIDE\POTASSIUM CHLORIDE
     Indication: Hypertension
     Dates: start: 20140401
  17. CARVEDILOL [Concomitant]
     Active Substance: CARVEDILOL
     Dates: start: 20190110
  18. CRESTOR [Concomitant]
     Active Substance: ROSUVASTATIN CALCIUM
     Dates: start: 20190110
  19. TAMSULOSIN HYDROCHLORIDE [Concomitant]
     Active Substance: TAMSULOSIN HYDROCHLORIDE
     Indication: Benign prostatic hyperplasia
     Dates: start: 20131009
  20. ALLOPURINOL [Concomitant]
     Active Substance: ALLOPURINOL
     Dates: start: 20220207
  21. SULFAMETHOXAZOLE\TRIMETHOPRIM [Concomitant]
     Active Substance: SULFAMETHOXAZOLE\TRIMETHOPRIM
     Dates: start: 20220207
  22. SOTROVIMAB [Concomitant]
     Active Substance: SOTROVIMAB
     Indication: COVID-19
     Route: 042
     Dates: start: 20220407, end: 20220407
  23. REMDESIVIR [Concomitant]
     Active Substance: REMDESIVIR
     Indication: COVID-19
  24. PIPERACILLIN [Concomitant]
     Active Substance: PIPERACILLIN
     Indication: COVID-19
     Dates: start: 20220406, end: 20220407
  25. TAZOBACTAM [Concomitant]
     Active Substance: TAZOBACTAM
     Indication: COVID-19
     Dates: start: 20220406, end: 20220407
  26. GANGIDEN [Concomitant]
     Indication: Constipation
     Dates: start: 20220131

REACTIONS (1)
  - Pyrexia [Recovering/Resolving]

NARRATIVE: CASE EVENT DATE: 20220427
